FAERS Safety Report 6429336-X (Version None)
Quarter: 2009Q4

REPORT INFORMATION
  Report Type: 
  Country: None (occurrence: None)
  Receive Date: 20091030
  Receipt Date: 20091023
  Transmission Date: 20100525
  Serious: Yes (Other)
  Sender: FDA-Public Use
  Company Number: 2009SP025471

PATIENT
  Age: 65 Year
  Sex: Male

DRUGS (4)
  1. INTEGRILIN [Suspect]
     Indication: VASCULAR OCCLUSION
     Dosage: IV
     Route: 042
  2. UNFRACTIONATED HEPARIN [Concomitant]
  3. PLAVIX [Concomitant]
  4. ASPIRIN [Concomitant]

REACTIONS (4)
  - CATHETER SITE DISCHARGE [None]
  - DRUG SPECIFIC ANTIBODY PRESENT [None]
  - PETECHIAE [None]
  - THROMBOCYTOPENIA [None]
